FAERS Safety Report 16358416 (Version 1)
Quarter: 2019Q2

REPORT INFORMATION
  Report Type: Report from Study
  Country: DE (occurrence: DE)
  Receive Date: 20190527
  Receipt Date: 20190527
  Transmission Date: 20190711
  Serious: Yes (Other)
  Sender: FDA-Public Use
  Company Number: DE-BRISTOL-MYERS SQUIBB COMPANY-BMS-2019-049035

PATIENT
  Age: 55 Year
  Sex: Female

DRUGS (1)
  1. NIVOLUMAB [Suspect]
     Active Substance: NIVOLUMAB
     Indication: MALIGNANT MELANOMA
     Dosage: 240 MILLIGRAM, Q4WK
     Route: 042
     Dates: start: 20181029

REACTIONS (3)
  - Crohn^s disease [Unknown]
  - Large intestinal obstruction [Unknown]
  - Off label use [Unknown]

NARRATIVE: CASE EVENT DATE: 20190130
